FAERS Safety Report 5071824-5 (Version None)
Quarter: 2006Q3

REPORT INFORMATION
  Report Type: 
  Country: None (occurrence: None)
  Receive Date: 20060801
  Receipt Date: 20060719
  Transmission Date: 20061208
  Serious: Yes (Other)
  Sender: FDA-Public Use
  Company Number: 200610650BFR

PATIENT
  Age: 50 Year
  Sex: Female

DRUGS (2)
  1. NEXAVAR [Suspect]
     Indication: METASTATIC RENAL CELL CARCINOMA
     Dosage: SEE IMAGE
     Route: 048
     Dates: start: 20060619, end: 20060702
  2. NEXAVAR [Suspect]
     Indication: METASTATIC RENAL CELL CARCINOMA
     Dosage: SEE IMAGE
     Route: 048
     Dates: start: 20060703

REACTIONS (2)
  - PERIPHERAL ISCHAEMIA [None]
  - SKIN LESION [None]
